FAERS Safety Report 20134508 (Version 1)
Quarter: 2021Q4

REPORT INFORMATION
  Report Type: Spontaneous
  Country: JP (occurrence: JP)
  Receive Date: 20211201
  Receipt Date: 20211201
  Transmission Date: 20220303
  Serious: Yes (Other)
  Sender: FDA-Public Use
  Company Number: JP-TEVA-2021-JP-1982485

PATIENT
  Age: 84 Year
  Sex: Female

DRUGS (3)
  1. PREDNISOLONE [Suspect]
     Active Substance: PREDNISOLONE
     Indication: Immune thrombocytopenia
     Dosage: 5 MILLIGRAM DAILY; INITIALLY DOSE INCREASED AND THEN DRUG WAS SWITCHED TO IV FORMULATION (NON-TEVA P
     Route: 048
  2. PREDNISOLONE [Suspect]
     Active Substance: PREDNISOLONE
     Dosage: 10 MILLIGRAM DAILY; INCREASED TO 10 MG
     Route: 048
  3. Immunoglobulin [Concomitant]
     Indication: Product used for unknown indication
     Route: 042

REACTIONS (2)
  - Osteoporosis [Unknown]
  - Condition aggravated [Unknown]
